FAERS Safety Report 8400515-5 (Version None)
Quarter: 2012Q2

REPORT INFORMATION
  Report Type: 
  Country: None (occurrence: None)
  Receive Date: 20120531
  Receipt Date: 20120524
  Transmission Date: 20120825
  Serious: Yes (Disabling)
  Sender: FDA-Public Use
  Company Number: ES-ROCHE-1072991

PATIENT
  Age: 47 Year
  Sex: Female

DRUGS (1)
  1. XOLAIR [Suspect]
     Indication: ASTHMA
     Route: 058
     Dates: start: 20120315

REACTIONS (8)
  - ARTHRALGIA [None]
  - DYSPNOEA [None]
  - ASTHMA [None]
  - OEDEMA PERIPHERAL [None]
  - JOINT SWELLING [None]
  - MYALGIA [None]
  - PAIN [None]
  - PYREXIA [None]
